FAERS Safety Report 10264134 (Version 1)
Quarter: 2014Q2

REPORT INFORMATION
  Report Type: Spontaneous
  Country: CN (occurrence: CN)
  Receive Date: 20140627
  Receipt Date: 20140627
  Transmission Date: 20141212
  Serious: Yes (Hospitalization)
  Sender: FDA-Public Use
  Company Number: CN-BRISTOL-MYERS SQUIBB COMPANY-21073770

PATIENT
  Age: 43 Year
  Sex: Male

DRUGS (1)
  1. GLUCOPHAGE TABS [Suspect]
     Indication: TYPE 2 DIABETES MELLITUS
     Route: 048
     Dates: start: 20131113, end: 20131118

REACTIONS (1)
  - Hepatic function abnormal [Recovering/Resolving]
